FAERS Safety Report 4350219-3 (Version None)
Quarter: 2004Q2

REPORT INFORMATION
  Report Type: 
  Country: None (occurrence: None)
  Receive Date: 20040428
  Receipt Date: 20040416
  Transmission Date: 20050107
  Serious: Yes (Hospitalization)
  Sender: FDA-Public Use
  Company Number: HQWYE511219APR04

PATIENT
  Age: 76 Year
  Sex: Female

DRUGS (11)
  1. ANCARON (AMIODARONE, TABLET) [Suspect]
     Indication: VENTRICULAR TACHYCARDIA
     Dosage: 200 MG 1X PER 1 DAY
     Route: 048
     Dates: start: 20030301, end: 20031209
  2. NIZATIDINE [Concomitant]
  3. PANTOSIN (PANTETHINE) [Concomitant]
  4. MAGNESIUM OXIDE HEAVY (MAGNESIUM OXIDE HEAVY) [Concomitant]
  5. ACARDI (PIMOBENDAN) [Concomitant]
  6. DEPAS (ETIZOLAM) [Concomitant]
  7. DIGOXIN [Concomitant]
  8. CARVEDILOL [Concomitant]
  9. ALDACTONE [Concomitant]
  10. LASIX [Concomitant]
  11. HALCION [Concomitant]

REACTIONS (1)
  - INTERSTITIAL LUNG DISEASE [None]
